FAERS Safety Report 8810468 (Version 2)
Quarter: 2012Q4

REPORT INFORMATION
  Report Type: 
  Country: US (occurrence: US)
  Receive Date: 20120927
  Receipt Date: 20121022
  Transmission Date: 20130627
  Serious: Yes (Death, Hospitalization)
  Sender: FDA-Public Use
  Company Number: US-BIOGENIDEC-2012BI040190

PATIENT
  Age: 48 Year
  Sex: Female

DRUGS (5)
  1. TYSABRI [Suspect]
     Indication: MULTIPLE SCLEROSIS
     Route: 042
     Dates: start: 20120402, end: 20120730
  2. PROVIGIL [Concomitant]
  3. BACTRIM [Concomitant]
  4. GENTAMICIN [Concomitant]
  5. NYSTATIN [Concomitant]

REACTIONS (3)
  - Drug specific antibody present [Unknown]
  - Sepsis [Fatal]
  - Intestinal obstruction [Unknown]
